FAERS Safety Report 9110180 (Version 6)
Quarter: 2018Q3

REPORT INFORMATION
  Report Type: Spontaneous
  Country: JP (occurrence: JP)
  Receive Date: 20130222
  Receipt Date: 20180726
  Transmission Date: 20181010
  Serious: Yes (Hospitalization)
  Sender: FDA-Public Use
  Company Number: JP-ROCHE-1193035

PATIENT
  Age: 26 Year
  Sex: Female
  Weight: 66 kg

DRUGS (20)
  1. XOLAIR [Suspect]
     Active Substance: OMALIZUMAB
     Indication: ASTHMA
     Route: 058
     Dates: start: 20100323, end: 20100810
  2. XOLAIR [Suspect]
     Active Substance: OMALIZUMAB
     Route: 058
     Dates: start: 20130215, end: 20130215
  3. SPIRIVA [Concomitant]
     Active Substance: TIOTROPIUM BROMIDE MONOHYDRATE
  4. SEREVENT DISKUS [Concomitant]
     Active Substance: SALMETEROL XINAFOATE
  5. REBAMIPIDE [Concomitant]
     Active Substance: REBAMIPIDE
  6. ONEALFA [Concomitant]
     Active Substance: ALFACALCIDOL
  7. PAXIL [Concomitant]
     Active Substance: PAROXETINE HYDROCHLORIDE
  8. KIPRES [Concomitant]
     Active Substance: MONTELUKAST SODIUM
  9. ALVESCO [Concomitant]
     Active Substance: CICLESONIDE
  10. XOLAIR [Suspect]
     Active Substance: OMALIZUMAB
     Route: 058
     Dates: start: 20100907
  11. LANSOPRAZOLE. [Concomitant]
     Active Substance: LANSOPRAZOLE
  12. GASMOTIN [Concomitant]
     Active Substance: MOSAPRIDE CITRATE
  13. XOLAIR [Suspect]
     Active Substance: OMALIZUMAB
     Route: 058
     Dates: start: 20130221
  14. XOLAIR [Suspect]
     Active Substance: OMALIZUMAB
     Route: 058
     Dates: start: 20101012, end: 20111018
  15. BAKTAR [Concomitant]
     Active Substance: SULFAMETHOXAZOLE\TRIMETHOPRIM
     Route: 065
     Dates: end: 20130215
  16. CRESTOR [Concomitant]
     Active Substance: ROSUVASTATIN CALCIUM
  17. XOLAIR [Suspect]
     Active Substance: OMALIZUMAB
     Route: 058
     Dates: start: 20121221, end: 20130215
  18. RIMATIL [Concomitant]
     Active Substance: BUCILLAMINE
  19. PREDONINE [Concomitant]
     Active Substance: PREDNISOLONE
     Indication: ASTHMA
     Route: 065
  20. PULMICORT TURBUHALER [Concomitant]
     Active Substance: BUDESONIDE

REACTIONS (13)
  - Upper airway obstruction [Recovered/Resolved]
  - Flushing [Recovered/Resolved]
  - Erythema [Unknown]
  - Blood pressure decreased [Not Recovered/Not Resolved]
  - Skin swelling [Unknown]
  - Human anti-human antibody test [Unknown]
  - Anaphylactic reaction [Recovered/Resolved]
  - Dyspnoea [Unknown]
  - Tracheal oedema [Unknown]
  - Erythema [Recovered/Resolved]
  - Wheezing [Unknown]
  - Heart rate increased [Recovered/Resolved]
  - Oedema [Unknown]

NARRATIVE: CASE EVENT DATE: 20130118
